FAERS Safety Report 22167737 (Version 1)
Quarter: 2023Q2

REPORT INFORMATION
  Report Type: Spontaneous
  Country: IT (occurrence: IT)
  Receive Date: 20230403
  Receipt Date: 20230403
  Transmission Date: 20230722
  Serious: Yes (Other)
  Sender: FDA-Public Use
  Company Number: IT-ELI_LILLY_AND_COMPANY-IT202303004019

PATIENT
  Age: 58 Year
  Sex: Male

DRUGS (9)
  1. PEMETREXED [Suspect]
     Active Substance: PEMETREXED
     Indication: Epithelioid mesothelioma
     Dosage: 1000 MG, CYCLICAL?1000 MG
     Route: 065
     Dates: start: 20221026
  2. PEMETREXED [Suspect]
     Active Substance: PEMETREXED
     Dosage: 1000 MG, CYCLICAL?1000 MG
     Route: 065
     Dates: start: 20221005
  3. PEMETREXED [Suspect]
     Active Substance: PEMETREXED
     Dosage: 980 MG, CYCLICAL
     Route: 065
     Dates: start: 20221130
  4. CISPLATIN [Suspect]
     Active Substance: CISPLATIN
     Indication: Epithelioid mesothelioma
     Dosage: 450 MG, CYCLICAL
     Route: 065
     Dates: start: 20221130
  5. CISPLATIN [Suspect]
     Active Substance: CISPLATIN
     Dosage: 150 MG, CYCLICAL
     Route: 065
     Dates: start: 20221026
  6. CISPLATIN [Suspect]
     Active Substance: CISPLATIN
     Dosage: 150 MG, CYCLICAL
     Route: 065
     Dates: start: 20221005
  7. CISPLATIN [Suspect]
     Active Substance: CISPLATIN
     Dosage: 35 MG, CYCLICAL
     Route: 065
     Dates: start: 20221130
  8. PEMETREXED [Concomitant]
     Active Substance: PEMETREXED
     Indication: Epithelioid mesothelioma
     Dosage: UNK UNK, UNKNOWN
     Route: 065
  9. PEMETREXED [Concomitant]
     Active Substance: PEMETREXED
     Indication: Epithelioid mesothelioma
     Dosage: UNK UNK, UNKNOWN
     Route: 065

REACTIONS (4)
  - Acute kidney injury [None]
  - Malignant neoplasm progression [None]
  - Vomiting [None]
  - Chest pain [None]

NARRATIVE: CASE EVENT DATE: 20221209
